FAERS Safety Report 6976375-6 (Version None)
Quarter: 2010Q3

REPORT INFORMATION
  Report Type: 
  Country: None (occurrence: None)
  Receive Date: 20100910
  Receipt Date: 20100831
  Transmission Date: 20110219
  Serious: Yes (Hospitalization, Disabling, Congenital Anomaly, Other)
  Sender: FDA-Public Use
  Company Number: US-PFIZER INC-2010109640

PATIENT
  Sex: Male
  Weight: 2.777 kg

DRUGS (3)
  1. ZOLOFT [Suspect]
     Dosage: UNK
     Route: 064
     Dates: end: 19991209
  2. XANAX [Concomitant]
     Dosage: UNK
     Route: 064
     Dates: end: 19991209
  3. SUDAFED 12 HOUR [Concomitant]
     Indication: HEADACHE
     Route: 064

REACTIONS (5)
  - ATRIAL SEPTAL DEFECT [None]
  - DEVELOPMENTAL DELAY [None]
  - DRUG EXPOSURE DURING PREGNANCY [None]
  - PATENT DUCTUS ARTERIOSUS [None]
  - VENTRICULAR SEPTAL DEFECT [None]
